FAERS Safety Report 10089378 (Version 2)
Quarter: 2014Q3

REPORT INFORMATION
  Report Type: Spontaneous
  Country: AU (occurrence: None)
  Receive Date: 20140417
  Receipt Date: 20140722
  Transmission Date: 20150326
  Serious: Yes (Life-Threatening, Other)
  Sender: FDA-Public Use
  Company Number: AUR-APL-2014-04470

PATIENT
  Sex: Female

DRUGS (3)
  1. AURO-QUETIPAINE 25 (QUETIPAINE) FILM-COATED TABLET, 25MG? [Suspect]
     Active Substance: QUETIAPINE
     Indication: PRODUCT USED FOR UNKNOWN INDICATION
     Dosage: (25 MG,1 D)
  2. DEPTRAN [Suspect]
     Active Substance: DOXEPIN HYDROCHLORIDE
     Indication: PRODUCT USED FOR UNKNOWN INDICATION
  3. CYMBALTA [Suspect]
     Active Substance: DULOXETINE HYDROCHLORIDE
     Indication: PRODUCT USED FOR UNKNOWN INDICATION

REACTIONS (5)
  - Pregnancy [None]
  - Prolonged labour [None]
  - Exposure during pregnancy [None]
  - Gestational diabetes [None]
  - Caesarean section [None]
